FAERS Safety Report 16274012 (Version 1)
Quarter: 2019Q2

REPORT INFORMATION
  Report Type: Other
  Country: US (occurrence: US)
  Receive Date: 20190503
  Receipt Date: 20190503
  Transmission Date: 20190711
  Serious: Yes (Life-Threatening)
  Sender: FDA-Public Use
  Company Number: US-ACIC FINE CHEMICALS INC-2066607

PATIENT
  Age: 59 Year
  Sex: Male

DRUGS (2)
  1. TRANEXAMIC ACID. [Suspect]
     Active Substance: TRANEXAMIC ACID
     Route: 040
  2. PROPOFOL. [Concomitant]
     Active Substance: PROPOFOL

REACTIONS (2)
  - Vascular stent thrombosis [None]
  - Acute myocardial infarction [None]
